FAERS Safety Report 8798165 (Version 2)
Quarter: 2012Q4

REPORT INFORMATION
  Report Type: Report from Study
  Country: US (occurrence: US)
  Receive Date: 20120920
  Receipt Date: 20121102
  Transmission Date: 20130627
  Serious: Yes (Hospitalization)
  Sender: FDA-Public Use
  Company Number: US-JNJFOC-20120908280

PATIENT
  Age: 17 Year
  Sex: Female
  Weight: 52.5 kg

DRUGS (4)
  1. REMICADE [Suspect]
     Indication: CROHN^S DISEASE
     Route: 042
     Dates: start: 20090116
  2. PHENERGAN [Concomitant]
  3. DURAGESIC [Concomitant]
  4. PERCOCET [Concomitant]

REACTIONS (2)
  - Pneumothorax [Recovered/Resolved]
  - Crohn^s disease [Recovered/Resolved]
